FAERS Safety Report 13825067 (Version 1)
Quarter: 2017Q3

REPORT INFORMATION
  Report Type: Spontaneous
  Country: US (occurrence: US)
  Receive Date: 20170802
  Receipt Date: 20170802
  Transmission Date: 20171127
  Serious: Yes (Death, Other)
  Sender: FDA-Public Use
  Company Number: US-PFIZER INC-2017333764

PATIENT
  Age: 78 Year
  Sex: Female

DRUGS (1)
  1. PROTONIX [Suspect]
     Active Substance: PANTOPRAZOLE SODIUM
     Indication: GASTROOESOPHAGEAL REFLUX DISEASE
     Dosage: UNK, NUMEROUS OCCASIONS
     Route: 048
     Dates: start: 2010

REACTIONS (6)
  - Multiple organ dysfunction syndrome [Unknown]
  - Renal impairment [Unknown]
  - End stage renal disease [Unknown]
  - Cardio-respiratory arrest [Unknown]
  - Chronic kidney disease [Unknown]
  - Death [Fatal]
